FAERS Safety Report 8127401-2 (Version None)
Quarter: 2012Q1

REPORT INFORMATION
  Report Type: 
  Country: None (occurrence: None)
  Receive Date: 20120210
  Receipt Date: 20120201
  Transmission Date: 20120608
  Serious: Yes (Other)
  Sender: FDA-Public Use
  Company Number: ES-JNJFOC-20120112236

PATIENT
  Sex: Male
  Weight: 82 kg

DRUGS (5)
  1. ETANERCEPT [Suspect]
     Indication: PSORIASIS
     Dates: start: 20090409, end: 20091015
  2. EFALIZUMAB [Suspect]
     Indication: PSORIASIS
     Dates: start: 20081126, end: 20090315
  3. ADALIMUMAB [Suspect]
     Indication: PSORIASIS
     Dates: start: 20100707, end: 20100805
  4. INFLIXIMAB [Suspect]
     Indication: PSORIASIS
     Dates: start: 20100217, end: 20100626
  5. STELARA [Suspect]
     Indication: PSORIASIS
     Route: 058
     Dates: start: 20091105, end: 20100128

REACTIONS (2)
  - LUNG NEOPLASM MALIGNANT [None]
  - DRUG INEFFECTIVE [None]
